FAERS Safety Report 8479239-4 (Version None)
Quarter: 2012Q2

REPORT INFORMATION
  Report Type: 
  Country: None (occurrence: None)
  Receive Date: 20120629
  Receipt Date: 20120620
  Transmission Date: 20120825
  Serious: Yes (Hospitalization)
  Sender: FDA-Public Use
  Company Number: US-GLAXOSMITHKLINE-A0875824A

PATIENT
  Age: 75 Year
  Sex: Male
  Weight: 97.7 kg

DRUGS (7)
  1. METFORMIN HCL [Concomitant]
  2. AVANDIA [Suspect]
     Indication: DIABETES MELLITUS
     Dosage: 8MG PER DAY
     Route: 048
     Dates: start: 19990720
  3. DIGOXIN [Concomitant]
  4. LOTREL [Concomitant]
  5. METOPROLOL SUCCINATE [Concomitant]
  6. LOVASTATIN [Concomitant]
  7. ZETIA [Concomitant]

REACTIONS (3)
  - MYOCARDIAL INFARCTION [None]
  - CORONARY ARTERY DISEASE [None]
  - CARDIAC FAILURE CONGESTIVE [None]
